FAERS Safety Report 5410504-0 (Version None)
Quarter: 2007Q3

REPORT INFORMATION
  Report Type: 
  Country: None (occurrence: None)
  Receive Date: 20070810
  Receipt Date: 20070129
  Transmission Date: 20080115
  Serious: No
  Sender: FDA-Public Use
  Company Number: A0637415A

PATIENT
  Age: 65 Year
  Sex: Female

DRUGS (3)
  1. PAXIL [Suspect]
     Indication: PANIC DISORDER
     Route: 048
  2. FOSAMAX [Concomitant]
  3. EVISTA [Concomitant]

REACTIONS (1)
  - INTRAOCULAR PRESSURE INCREASED [None]
